FAERS Safety Report 19258940 (Version 2)
Quarter: 2021Q2

REPORT INFORMATION
  Report Type: Spontaneous
  Country: US (occurrence: US)
  Receive Date: 20210514
  Receipt Date: 20210521
  Transmission Date: 20210717
  Serious: Yes (Death, Other)
  Sender: FDA-Public Use
  Company Number: US-ROCHE-2828411

PATIENT
  Age: 83 Year
  Sex: Male
  Weight: 74 kg

DRUGS (11)
  1. ESBRIET [Suspect]
     Active Substance: PIRFENIDONE
     Indication: PULMONARY FIBROSIS
     Route: 048
     Dates: start: 201805, end: 202104
  2. ALLEGRA [Concomitant]
     Active Substance: FEXOFENADINE HYDROCHLORIDE
     Route: 048
  3. NASACORT [Concomitant]
     Active Substance: TRIAMCINOLONE ACETONIDE
     Dosage: 55 MCG/ACT SPRAY 2 BY NOSTRIL
     Route: 045
  4. OXYGEN. [Concomitant]
     Active Substance: OXYGEN
     Dosage: 8 L
  5. SHINGRIX [Concomitant]
     Active Substance: RECOMBINANT VARICELLA ZOSTER VIRUS (VZV) GLYCOPROTEIN E
     Dates: start: 20181105
  6. PFIZER?BIONTECH COVID?19 VACCINE [Concomitant]
     Active Substance: TOZINAMERAN
     Dosage: 100 MCG/0.5 ML
     Route: 030
     Dates: start: 20210319
  7. VITAMIN D3 [Concomitant]
     Active Substance: CHOLECALCIFEROL
     Dosage: 2000 UNIT
     Route: 048
  8. MOTRIN [Concomitant]
     Active Substance: IBUPROFEN
     Dosage: EVERY 12 HOURS AS NEEDED
     Route: 048
  9. SYNTHROID [Concomitant]
     Active Substance: LEVOTHYROXINE SODIUM
     Route: 048
  10. FLUZONE [Concomitant]
     Active Substance: INFLUENZA A VIRUS A/CALIFORNIA/7/2009 X-179A (H1N1) ANTIGEN (FORMALDEHYDE INACTIVATED)\INFLUENZA A VIRUS A/VICTORIA/210/2009 X-187 (H3N2) ANTIGEN (FORMALDEHYDE INACTIVATED)\INFLUENZA B VIRUS B/BRISBANE/60/2008 ANTIGEN (FORMALDEHYDE INACTIVATED)
     Dosage: 05/NOV/2018 AND 06/FEB/2018
  11. NEURONTIN [Concomitant]
     Active Substance: GABAPENTIN

REACTIONS (4)
  - Idiopathic pulmonary fibrosis [Fatal]
  - Loss of consciousness [Unknown]
  - Appetite disorder [Unknown]
  - Chronic respiratory failure [Unknown]

NARRATIVE: CASE EVENT DATE: 20210419
